FAERS Safety Report 9846094 (Version 4)
Quarter: 2014Q1

REPORT INFORMATION
  Report Type: Spontaneous
  Country: BG (occurrence: BG)
  Receive Date: 20140127
  Receipt Date: 20140314
  Transmission Date: 20141002
  Serious: Yes (Hospitalization, Other)
  Sender: FDA-Public Use
  Company Number: BG-NOVOPROD-397969

PATIENT
  Age: 40 Year
  Sex: Female
  Weight: 71 kg

DRUGS (4)
  1. NOVORAPID PENFILL [Suspect]
     Indication: TYPE 1 DIABETES MELLITUS
     Dosage: 18 U, QD (3X6 UNITS)
     Route: 058
     Dates: start: 2011
  2. NOVORAPID PENFILL [Suspect]
     Dosage: UNK
     Route: 065
     Dates: start: 201312, end: 20140113
  3. LEVEMIR PENFILL [Suspect]
     Indication: TYPE 1 DIABETES MELLITUS
     Dosage: 28 U, QD (10 UNITS IN THE MORNING AND 18 UNITS IN THE EVENING)
     Route: 058
     Dates: start: 201110, end: 201312
  4. LEVEMIR PENFILL [Suspect]
     Dosage: UNK
     Route: 065
     Dates: start: 201312, end: 20140113

REACTIONS (4)
  - Hypersensitivity [Recovered/Resolved]
  - Drug hypersensitivity [Recovered/Resolved]
  - Blood glucose increased [Recovered/Resolved]
  - Expired drug administered [Unknown]
